FAERS Safety Report 15588152 (Version 1)
Quarter: 2018Q4

REPORT INFORMATION
  Report Type: Report from Study
  Country: MX (occurrence: MX)
  Receive Date: 20181105
  Receipt Date: 20181105
  Transmission Date: 20190205
  Serious: Yes (Other)
  Sender: FDA-Public Use
  Company Number: MX-SHIRE-MX201841454

PATIENT

DRUGS (1)
  1. ELAPRASE [Suspect]
     Active Substance: IDURSULFASE
     Indication: MUCOPOLYSACCHARIDOSIS II
     Dosage: 2 DF, 1X/WEEK
     Route: 042
     Dates: start: 200803

REACTIONS (3)
  - Therapy cessation [Unknown]
  - Blindness [Unknown]
  - Seizure [Unknown]
